FAERS Safety Report 8840550 (Version 2)
Quarter: 2012Q4

REPORT INFORMATION
  Report Type: 
  Country: US (occurrence: US)
  Receive Date: 20121015
  Receipt Date: 20121207
  Transmission Date: 20130627
  Serious: Yes (Other)
  Sender: FDA-Public Use
  Company Number: US-ELI_LILLY_AND_COMPANY-US201210002300

PATIENT
  Sex: Female
  Weight: 42.18 kg

DRUGS (1)
  1. FORTEO [Suspect]
     Indication: COMPRESSION FRACTURE
     Dosage: 20 ug, qd
     Route: 058
     Dates: start: 20110808, end: 201208

REACTIONS (2)
  - Lung carcinoma cell type unspecified recurrent [Unknown]
  - Off label use [Unknown]
